FAERS Safety Report 17053132 (Version 1)
Quarter: 2019Q4

REPORT INFORMATION
  Report Type: Other
  Country: US (occurrence: US)
  Receive Date: 20191120
  Receipt Date: 20191120
  Transmission Date: 20200122
  Serious: Yes (Life-Threatening, Hospitalization, Disabling, Other)
  Sender: FDA-Public Use
  Company Number: US-WES PHARMA INC-2077041

PATIENT
  Age: 3 Year
  Sex: Male

DRUGS (1)
  1. OXYCODONE HYDROCHLORIDE. [Suspect]
     Active Substance: OXYCODONE HYDROCHLORIDE
     Indication: PRODUCT USED FOR UNKNOWN INDICATION
     Route: 048

REACTIONS (13)
  - Disseminated intravascular coagulation [Unknown]
  - Respiratory acidosis [Recovering/Resolving]
  - Encephalitis [Recovering/Resolving]
  - Metabolic acidosis [Recovering/Resolving]
  - Brain herniation [Recovering/Resolving]
  - Unresponsive to stimuli [Recovered/Resolved with Sequelae]
  - Blindness [Unknown]
  - Toxicity to various agents [Recovering/Resolving]
  - Multiple organ dysfunction syndrome [Unknown]
  - Loss of personal independence in daily activities [Unknown]
  - Brain oedema [Recovering/Resolving]
  - Leukoencephalopathy [Recovering/Resolving]
  - Coma [Recovered/Resolved with Sequelae]
